FAERS Safety Report 10033597 (Version 1)
Quarter: 2014Q1

REPORT INFORMATION
  Report Type: Spontaneous
  Country: US (occurrence: US)
  Receive Date: 20140325
  Receipt Date: 20140325
  Transmission Date: 20141002
  Serious: No
  Sender: FDA-Public Use
  Company Number: US-BIOGENIDEC-2014BI023064

PATIENT
  Age: 74 Year
  Sex: Female

DRUGS (12)
  1. TECFIDERA [Suspect]
     Indication: MULTIPLE SCLEROSIS
     Route: 048
     Dates: start: 20140213
  2. TECFIDERA [Suspect]
     Indication: MULTIPLE SCLEROSIS
     Route: 048
     Dates: start: 20140302
  3. ALEVE [Concomitant]
  4. BACLOFEN [Concomitant]
  5. BONIVA [Concomitant]
  6. CALCIUM + D [Concomitant]
  7. CITALOPRAM HYDROBROMIDE [Concomitant]
  8. CITRACAL PLUS [Concomitant]
  9. LEVOTHYROXINE SODIUM [Concomitant]
  10. LEXAPRO [Concomitant]
  11. SIMVASTATIN [Concomitant]
  12. VITAMIN B12 [Concomitant]

REACTIONS (3)
  - Fatigue [Not Recovered/Not Resolved]
  - Muscular weakness [Not Recovered/Not Resolved]
  - Vision blurred [Unknown]
